FAERS Safety Report 14215054 (Version 1)
Quarter: 2017Q4

REPORT INFORMATION
  Report Type: Spontaneous
  Country: US (occurrence: US)
  Receive Date: 20171122
  Receipt Date: 20171122
  Transmission Date: 20180321
  Serious: No
  Sender: FDA-Public Use
  Company Number: US-JNJFOC-20171033691

PATIENT

DRUGS (2)
  1. NIZORAL A-D [Suspect]
     Active Substance: KETOCONAZOLE
     Indication: PRURITUS
     Dosage: STRENGTH 1 %
     Route: 061
  2. NIZORAL A-D [Suspect]
     Active Substance: KETOCONAZOLE
     Indication: MULTIPLE ALLERGIES
     Dosage: STRENGTH 1 %
     Route: 061

REACTIONS (2)
  - Off label use [Unknown]
  - Product use in unapproved indication [Unknown]
